FAERS Safety Report 24652028 (Version 1)
Quarter: 2024Q4

REPORT INFORMATION
  Report Type: Spontaneous
  Country: IR (occurrence: IR)
  Receive Date: 20241122
  Receipt Date: 20241122
  Transmission Date: 20250114
  Serious: Yes (Death, Hospitalization, Other)
  Sender: Steriscience PTE
  Company Number: IR-STERISCIENCE B.V.-2024-ST-001946

PATIENT
  Age: 50 Year
  Sex: Male

DRUGS (14)
  1. MEROPENEM [Suspect]
     Active Substance: MEROPENEM
     Indication: Klebsiella infection
     Dosage: 500 MILLIGRAM, BID
  2. IMIPENEM AND CILASTATIN [Suspect]
     Active Substance: CILASTATIN SODIUM\IMIPENEM
     Indication: Evidence based treatment
     Dosage: 500 MILLIGRAM, BID
     Dates: start: 202112
  3. IMIPENEM [Suspect]
     Active Substance: IMIPENEM
     Indication: Klebsiella infection
     Dosage: 500 MILLIGRAM, BID
  4. COLISTIN [Suspect]
     Active Substance: COLISTIN
     Indication: Klebsiella infection
     Dosage: UNK, BID, 4.5 X 106?UNITS EVERY 12?HOURS
  5. COLISTIN [Suspect]
     Active Substance: COLISTIN
     Indication: Liver abscess
  6. COLISTIN [Suspect]
     Active Substance: COLISTIN
     Indication: Escherichia infection
  7. AMIKACIN [Suspect]
     Active Substance: AMIKACIN
     Indication: Klebsiella infection
     Dosage: 500 MILLIGRAM, BID
  8. AMIKACIN [Suspect]
     Active Substance: AMIKACIN
     Indication: Liver abscess
  9. AMIKACIN [Suspect]
     Active Substance: AMIKACIN
     Indication: Escherichia infection
  10. DOXYCYCLINE [Suspect]
     Active Substance: DOXYCYCLINE
     Indication: Klebsiella infection
     Dosage: 100 MILLIGRAM, BID
     Route: 065
  11. TIGECYCLINE [Suspect]
     Active Substance: TIGECYCLINE
     Indication: Klebsiella infection
     Dosage: 50 MILLIGRAM, BID
  12. LINEZOLID [Suspect]
     Active Substance: LINEZOLID
     Indication: Klebsiella infection
     Dosage: 600 MILLIGRAM, BID
     Route: 065
  13. FLUCONAZOLE [Concomitant]
     Active Substance: FLUCONAZOLE
     Indication: Fungal infection
     Dosage: 100 MILLIGRAM, BID
     Route: 065
  14. ACYCLOVIR [Concomitant]
     Active Substance: ACYCLOVIR
     Indication: Herpes zoster
     Dosage: UNK
     Route: 065

REACTIONS (3)
  - Sepsis [Fatal]
  - Drug ineffective [Fatal]
  - Drug resistance [Fatal]
